FAERS Safety Report 11825849 (Version 2)
Quarter: 2016Q1

REPORT INFORMATION
  Report Type: Report from Study
  Country: BR (occurrence: BR)
  Receive Date: 20151211
  Receipt Date: 20160307
  Transmission Date: 20160525
  Serious: Yes (Hospitalization, Other)
  Sender: FDA-Public Use
  Company Number: BR-ABBVIE-13P-020-1111058-00

PATIENT
  Age: 67 Year
  Sex: Female
  Weight: 66 kg

DRUGS (6)
  1. MODURETIC 5-50 [Concomitant]
     Active Substance: AMILORIDE HYDROCHLORIDE\HYDROCHLOROTHIAZIDE
     Indication: PRODUCT USED FOR UNKNOWN INDICATION
  2. ATENOLOL. [Concomitant]
     Active Substance: ATENOLOL
     Indication: HYPERTENSION
     Route: 048
  3. METHOTREXATE [Concomitant]
     Active Substance: METHOTREXATE
     Indication: RHEUMATOID ARTHRITIS
     Route: 048
  4. HUMIRA [Suspect]
     Active Substance: ADALIMUMAB
     Indication: RHEUMATOID ARTHRITIS
     Route: 058
     Dates: start: 20120723, end: 201508
  5. METHOTREXATE [Concomitant]
     Active Substance: METHOTREXATE
     Indication: HYPERTENSION
     Route: 048
  6. HYDROCHLOROTHIAZIDE. [Concomitant]
     Active Substance: HYDROCHLOROTHIAZIDE
     Indication: HYPERTENSION
     Route: 048

REACTIONS (15)
  - Pneumonia [Recovering/Resolving]
  - Joint range of motion decreased [Not Recovered/Not Resolved]
  - Osteoporosis [Recovered/Resolved]
  - Osteoarthritis [Unknown]
  - Fall [Unknown]
  - Pain [Unknown]
  - Post procedural infection [Recovered/Resolved]
  - Gait disturbance [Unknown]
  - Insomnia [Unknown]
  - Lumbar vertebral fracture [Recovered/Resolved]
  - Hypersensitivity [Recovered/Resolved]
  - Purulence [Recovered/Resolved]
  - Bursitis [Unknown]
  - Post procedural complication [Recovered/Resolved]
  - Ligament disorder [Unknown]

NARRATIVE: CASE EVENT DATE: 201303
